FAERS Safety Report 22203637 (Version 1)
Quarter: 2023Q2

REPORT INFORMATION
  Report Type: Spontaneous
  Country: FR (occurrence: FR)
  Receive Date: 20230412
  Receipt Date: 20230412
  Transmission Date: 20230722
  Serious: Yes (Hospitalization, Other)
  Sender: FDA-Public Use
  Company Number: None

PATIENT
  Age: 65 Year
  Sex: Male
  Weight: 111 kg

DRUGS (1)
  1. ELIQUIS [Suspect]
     Active Substance: APIXABAN
     Indication: Cerebrovascular accident prophylaxis
     Dosage: 5 MG/ 1-0-1
     Route: 048
     Dates: end: 20230107

REACTIONS (2)
  - Red blood cell count decreased [Recovering/Resolving]
  - Perineal haematoma [Recovering/Resolving]

NARRATIVE: CASE EVENT DATE: 20230107
